FAERS Safety Report 9407550 (Version 2)
Quarter: 2013Q3

REPORT INFORMATION
  Report Type: Spontaneous
  Country: US (occurrence: US)
  Receive Date: 20130718
  Receipt Date: 20130725
  Transmission Date: 20140515
  Serious: Yes (Hospitalization, Other)
  Sender: FDA-Public Use
  Company Number: CHPA2013US011207

PATIENT
  Age: 84 Year
  Sex: Female

DRUGS (1)
  1. PERDIEM OVERNIGHT RELIEF PILLS [Suspect]
     Indication: CONSTIPATION
     Dosage: 1 DF, QD
     Route: 048

REACTIONS (4)
  - Fall [Recovered/Resolved]
  - Pain in extremity [Recovered/Resolved]
  - Blood electrolytes decreased [Recovered/Resolved]
  - Incorrect drug administration duration [Unknown]
